FAERS Safety Report 19095618 (Version 1)
Quarter: 2021Q2

REPORT INFORMATION
  Report Type: Spontaneous
  Country: BR (occurrence: BR)
  Receive Date: 20210406
  Receipt Date: 20210406
  Transmission Date: 20210717
  Serious: Yes (Other)
  Sender: FDA-Public Use
  Company Number: BR-ALKEM LABORATORIES LIMITED-BR-ALKEM-2021-00390

PATIENT
  Age: 30 Year
  Sex: Male

DRUGS (8)
  1. RISPERIDONE. [Suspect]
     Active Substance: RISPERIDONE
     Indication: ANXIETY DISORDER
  2. LITHIUM. [Suspect]
     Active Substance: LITHIUM
     Indication: ANXIETY DISORDER
  3. LITHIUM. [Suspect]
     Active Substance: LITHIUM
     Indication: DIGEORGE^S SYNDROME
     Dosage: UNK
     Route: 065
     Dates: start: 2017, end: 2018
  4. HALOPERIDOL. [Suspect]
     Active Substance: HALOPERIDOL
     Indication: ANXIETY DISORDER
  5. RISPERIDONE. [Suspect]
     Active Substance: RISPERIDONE
     Indication: DIGEORGE^S SYNDROME
     Dosage: UNK
     Route: 065
     Dates: end: 2018
  6. QUETIAPINE FUMARATE. [Suspect]
     Active Substance: QUETIAPINE FUMARATE
     Indication: ANXIETY DISORDER
  7. HALOPERIDOL. [Suspect]
     Active Substance: HALOPERIDOL
     Indication: DIGEORGE^S SYNDROME
     Dosage: UNK
     Route: 065
     Dates: start: 2017, end: 2018
  8. QUETIAPINE FUMARATE. [Suspect]
     Active Substance: QUETIAPINE FUMARATE
     Indication: DIGEORGE^S SYNDROME
     Dosage: UNK
     Route: 065
     Dates: end: 2018

REACTIONS (1)
  - Dystonia [Recovered/Resolved]

NARRATIVE: CASE EVENT DATE: 2017
